FAERS Safety Report 6882033-9 (Version None)
Quarter: 2010Q3

REPORT INFORMATION
  Report Type: 
  Country: None (occurrence: None)
  Receive Date: 20100727
  Receipt Date: 20100727
  Transmission Date: 20110219
  Serious: Yes (Other)
  Sender: FDA-Public Use
  Company Number: None

PATIENT
  Age: 54 Year
  Sex: Male
  Weight: 83.4619 kg

DRUGS (11)
  1. RISPERIDONE [Suspect]
     Indication: PSYCHOTIC DISORDER
     Dosage: TAKE ONE AT NIGHT
     Dates: start: 20100607, end: 20100609
  2. RISPERIDONE [Suspect]
     Dosage: TAKE ONE AT NIGHT
     Dates: start: 20100725, end: 20100726
  3. SINGULAIR [Concomitant]
  4. GABAPENTIN [Concomitant]
  5. BUPROPION [Concomitant]
  6. LORAZEPAM [Concomitant]
  7. LITHIUM CARBONATE [Concomitant]
  8. QUETIAPINE FUMERATE [Concomitant]
  9. SINEMET [Concomitant]
  10. ALBUTEROL [Concomitant]
  11. FLO-NAZE [Concomitant]

REACTIONS (5)
  - DIARRHOEA [None]
  - HEADACHE [None]
  - MUSCLE TIGHTNESS [None]
  - NAUSEA [None]
  - PRODUCT SUBSTITUTION ISSUE [None]
